FAERS Safety Report 10481987 (Version 1)
Quarter: 2014Q3

REPORT INFORMATION
  Report Type: Spontaneous
  Country: JP (occurrence: JP)
  Receive Date: 20140929
  Receipt Date: 20140929
  Transmission Date: 20150326
  Serious: Yes (Other)
  Sender: FDA-Public Use
  Company Number: JP-TEVA-512201ISR

PATIENT
  Age: 72 Year
  Sex: Male

DRUGS (1)
  1. PLATOSIN [Suspect]
     Active Substance: CISPLATIN

REACTIONS (1)
  - Deafness [Unknown]
